FAERS Safety Report 20670140 (Version 1)
Quarter: 2022Q2

REPORT INFORMATION
  Report Type: Spontaneous
  Country: US (occurrence: None)
  Receive Date: 20220401
  Receipt Date: 20220401
  Transmission Date: 20220721
  Serious: Yes (Hospitalization)
  Sender: FDA-Public Use
  Company Number: None

PATIENT
  Sex: Female

DRUGS (2)
  1. ARANESP [Suspect]
     Active Substance: DARBEPOETIN ALFA
     Indication: Renal transplant
     Dosage: 1 SYRINGE ONCE WEEKLY SUBCUTANEOUS? ?
     Route: 058
     Dates: start: 202106
  2. TACROLIMUS [Suspect]
     Active Substance: TACROLIMUS
     Indication: Renal transplant
     Dosage: 3MG TWICE A DAY ORAL?
     Route: 048
     Dates: start: 202201

REACTIONS (2)
  - Kidney transplant rejection [None]
  - Blood pressure fluctuation [None]
